FAERS Safety Report 17616887 (Version 1)
Quarter: 2020Q2

REPORT INFORMATION
  Report Type: Spontaneous
  Country: JP (occurrence: JP)
  Receive Date: 20200402
  Receipt Date: 20200402
  Transmission Date: 20200713
  Serious: Yes (Death, Other)
  Sender: FDA-Public Use
  Company Number: JP-009507513-1504JPN007640

PATIENT
  Age: 53 Year
  Sex: Female
  Weight: 44 kg

DRUGS (4)
  1. AMBISOME [Concomitant]
     Active Substance: AMPHOTERICIN B
     Indication: MYCOTIC ENDOPHTHALMITIS
     Dosage: 100 MILLIGRAM, QD
     Route: 051
     Dates: start: 20130617, end: 20130625
  2. OMEGACIN (BIAPENEM) [Concomitant]
     Active Substance: BIAPENEM
     Indication: SEPSIS
     Dosage: 0.3 GRAM, BID
     Route: 051
     Dates: start: 20130617, end: 20130625
  3. MEROPEN [Concomitant]
     Active Substance: MEROPENEM
     Indication: SEPSIS
     Dosage: 0.5 GRAM, BID
     Route: 051
     Dates: start: 20130520, end: 20130616
  4. CUBICIN [Suspect]
     Active Substance: DAPTOMYCIN
     Indication: SEPSIS
     Dosage: 6 MILLIGRAM/KILOGRAM, QOD
     Route: 041
     Dates: start: 20130520, end: 20130625

REACTIONS (1)
  - Acute myeloid leukaemia [Fatal]

NARRATIVE: CASE EVENT DATE: 20130627
